FAERS Safety Report 7243113-1 (Version None)
Quarter: 2011Q1

REPORT INFORMATION
  Report Type: 
  Country: None (occurrence: None)
  Receive Date: 20110118
  Receipt Date: 20110103
  Transmission Date: 20110831
  Serious: Yes (Other)
  Sender: FDA-Public Use
  Company Number: 11-001-02

PATIENT
  Age: 48 Year
  Sex: Male

DRUGS (1)
  1. LEVETIRACETAM [Suspect]
     Indication: GRAND MAL CONVULSION
     Dosage: 2G;QD;

REACTIONS (2)
  - CONVULSION [None]
  - FATIGUE [None]
